FAERS Safety Report 4471828-7 (Version None)
Quarter: 2004Q4

REPORT INFORMATION
  Report Type: 
  Country: None (occurrence: None)
  Receive Date: 20041006
  Receipt Date: 20040921
  Transmission Date: 20050328
  Serious: Yes (Other)
  Sender: FDA-Public Use
  Company Number: USA-2002-0000557

PATIENT
  Age: 45 Year
  Sex: Male

DRUGS (16)
  1. OXYCONTIN [Suspect]
     Indication: PAIN
     Dosage: 10 MG, SEE TEXT; ORAL
     Route: 048
     Dates: start: 20010411, end: 20010728
  2. OXYCONTIN [Suspect]
     Indication: PAIN
     Dosage: 20 MG, SEE TEXT; ORAL
     Route: 048
     Dates: start: 20010419, end: 20010728
  3. OXYCONTIN [Suspect]
     Indication: PAIN
     Dosage: 40 MG, SEE TEXT; ORAL
     Route: 048
     Dates: start: 20010614, end: 20010728
  4. LORCET-HD [Suspect]
     Indication: PAIN
     Dosage: UNK, SEE TEXT; ORAL
     Route: 048
     Dates: start: 20000101, end: 20010101
  5. CELEBREX [Concomitant]
  6. ALLEGRA-D (FEXOFENADINE, PSEUDOEPHEDRINE HYDROCHLORIDE) [Concomitant]
  7. FLONASE [Concomitant]
  8. CLONOPIN (CLONAZEPAM) [Concomitant]
  9. KETOROLAC (KETOROLAC) [Concomitant]
  10. MEDROL [Concomitant]
  11. AMBIEN [Concomitant]
  12. LIDODERM (COULD NOT ENCODE) [Concomitant]
  13. NEURONTIN [Concomitant]
  14. NORTRIPTYLINE HCL [Concomitant]
  15. K-DUR 10 [Concomitant]
  16. LOPRESSOR [Concomitant]

REACTIONS (18)
  - ANXIETY [None]
  - BIPOLAR DISORDER [None]
  - DEPRESSION [None]
  - DRUG ABUSER [None]
  - DRUG DEPENDENCE [None]
  - DRUG INEFFECTIVE [None]
  - DRUG TOLERANCE [None]
  - DRUG WITHDRAWAL SYNDROME [None]
  - EMOTIONAL DISTRESS [None]
  - HYPOAESTHESIA [None]
  - INSOMNIA [None]
  - MUSCLE SPASMS [None]
  - MUSCULOSKELETAL STIFFNESS [None]
  - PAIN [None]
  - PERSONALITY DISORDER [None]
  - SOMNOLENCE [None]
  - SUICIDAL IDEATION [None]
  - WEIGHT DECREASED [None]
